FAERS Safety Report 7518999-3 (Version None)
Quarter: 2011Q2

REPORT INFORMATION
  Report Type: 
  Country: None (occurrence: None)
  Receive Date: 20110523
  Receipt Date: 20110509
  Transmission Date: 20111010
  Serious: Yes (Hospitalization, Other)
  Sender: FDA-Public Use
  Company Number: 2011MA005703

PATIENT
  Age: 41 Year
  Sex: Female

DRUGS (1)
  1. FEVERALL [Suspect]

REACTIONS (7)
  - OESOPHAGEAL HAEMORRHAGE [None]
  - OESOPHAGEAL STENOSIS [None]
  - OESOPHAGEAL OBSTRUCTION [None]
  - FOREIGN BODY [None]
  - EOSINOPHILIC OESOPHAGITIS [None]
  - OESOPHAGEAL PERFORATION [None]
  - CHEST PAIN [None]
